FAERS Safety Report 21040015 (Version 3)
Quarter: 2024Q1

REPORT INFORMATION
  Report Type: Spontaneous
  Country: GB (occurrence: GB)
  Receive Date: 20220704
  Receipt Date: 20240304
  Transmission Date: 20240410
  Serious: Yes (Death, Other)
  Sender: FDA-Public Use
  Company Number: GB-BAXTER-2022BAX013432

PATIENT
  Sex: Female

DRUGS (13)
  1. ADENOSINE [Suspect]
     Active Substance: ADENOSINE
     Indication: Supraventricular tachycardia
     Dosage: 700 UG AT AN UNSPECIFIED FREQUENCY (FIRST DOSE) (DOSAGE TEXT: 700 UG (150 MCG/KG), FOCUS INJECTION S
     Dates: start: 20200711
  2. ADENOSINE [Suspect]
     Active Substance: ADENOSINE
     Dosage: 940 UG AT AN UNSPECIFIED FREQUENCY (SECOND DOSE) (DOSAGE TEXT: 940 UG (200 MCG/KG)) (DOSAGE FORM: SO
     Dates: start: 20200711
  3. ADENOSINE [Suspect]
     Active Substance: ADENOSINE
     Dosage: 1400 UG AT AN UNSPECIFIED FREQUENCY (THIRD DOSE) (DOSAGE TEXT: 1400 UG (300 MCG/KG)) (DOSAGE FORM: S
     Dates: start: 20200711
  4. AMIODARONE [Concomitant]
     Active Substance: AMIODARONE
     Indication: Ventricular fibrillation
     Dosage: AT AN UNSPECIFIED DOSE AND FREQUENCY (DOASGE TEXT: UNK)
     Route: 065
     Dates: start: 20200711
  5. AMIODARONE [Concomitant]
     Active Substance: AMIODARONE
     Dosage: UNK
     Route: 065
     Dates: start: 20200711
  6. AMOXICILLIN [Concomitant]
     Active Substance: AMOXICILLIN
     Indication: Sepsis
     Dosage: 141 MG AT AN UNSPECIFIED FREQUENCY (DOASGE TEXT: 141 MG (10 ML SYRINGE))
     Route: 065
     Dates: start: 20200711
  7. CEFOTAXIME [Concomitant]
     Active Substance: CEFOTAXIME SODIUM
     Indication: Sepsis
     Dosage: 235 MG AT AN UNSPECIFIED FREQUENCY (DOSAGE TEXT: 235 MG (10 ML SYRINGE))
     Route: 065
     Dates: start: 20200711
  8. SODIUM BICARBONATE [Concomitant]
     Active Substance: SODIUM BICARBONATE
     Dosage: AT AN UNSPECIFIED DOSE AND FREQUENCY (DOASGE TEXT: UNK)
     Route: 065
     Dates: start: 20200711
  9. DEXTROSE [Concomitant]
     Active Substance: DEXTROSE\DEXTROSE MONOHYDRATE
     Dosage: 10 PERCENT AT AN UNSPECIFIED FREQUEN (DOSAGE TEXT: 10%)
     Route: 040
     Dates: start: 20200711
  10. DEXTROSE [Concomitant]
     Active Substance: DEXTROSE\DEXTROSE MONOHYDRATE
     Dosage: AT AN UNSPECIFIED DOSE AND FREQUENCY (DOSAGE TEXT: UNK)
     Route: 040
     Dates: start: 20200711
  11. DEXTROSE [Concomitant]
     Active Substance: DEXTROSE\DEXTROSE MONOHYDRATE
     Dosage: AT AN UNSPECIFIED DOSE AND FREQUENCY (DOSAGE TEXT: UNK)
     Route: 065
     Dates: start: 20200711
  12. DEXTROSE [Concomitant]
     Active Substance: DEXTROSE\DEXTROSE MONOHYDRATE
     Dosage: 10 PERCENT AT AN UNSPECIFIED FREQUEN (DOSAGE TEXT: 10%)
     Route: 040
     Dates: start: 20200711
  13. SALINE [Concomitant]
     Active Substance: SODIUM CHLORIDE
     Dosage: AT AN UNSPECIFIED DOSE AND FREQUENCY (DOSAGE TEXT: 10MLS SALINE FLUSH, THIS WAS THEN FOLLOWED BY 20M
     Route: 040
     Dates: start: 20200711

REACTIONS (3)
  - Overdose [Fatal]
  - Product administration error [Unknown]
  - Cardiac arrest [Fatal]

NARRATIVE: CASE EVENT DATE: 20200711
